FAERS Safety Report 18277837 (Version 1)
Quarter: 2020Q3

REPORT INFORMATION
  Report Type: Spontaneous
  Country: US (occurrence: US)
  Receive Date: 20200917
  Receipt Date: 20200917
  Transmission Date: 20201103
  Serious: Yes (Other)
  Sender: FDA-Public Use
  Company Number: None

PATIENT
  Sex: Male

DRUGS (2)
  1. CILOSTAZOL .05% CREAM [Suspect]
     Active Substance: CILOSTAZOL
  2. DESONIDE .05% CREAM [Suspect]
     Active Substance: DESONIDE

REACTIONS (1)
  - Therapy non-responder [None]
